FAERS Safety Report 6836976-2 (Version None)
Quarter: 2010Q3

REPORT INFORMATION
  Report Type: 
  Country: None (occurrence: None)
  Receive Date: 20100713
  Receipt Date: 20100702
  Transmission Date: 20110219
  Serious: Yes (Other)
  Sender: FDA-Public Use
  Company Number: PHHY2010GR43485

PATIENT
  Age: 63 Year
  Sex: Male

DRUGS (5)
  1. CERTICAN [Suspect]
     Indication: RENAL TRANSPLANT
     Dosage: UNK
     Dates: start: 20100401, end: 20100501
  2. CERTICAN [Suspect]
     Indication: PROPHYLAXIS AGAINST TRANSPLANT REJECTION
  3. CORTISONE [Concomitant]
  4. APROVEL [Concomitant]
  5. CRESTOR [Concomitant]

REACTIONS (2)
  - ALBUMINURIA [None]
  - BLOOD CREATININE INCREASED [None]
